FAERS Safety Report 5500828-0 (Version None)
Quarter: 2007Q4

REPORT INFORMATION
  Report Type: 
  Country: None (occurrence: None)
  Receive Date: 20071029
  Receipt Date: 20071019
  Transmission Date: 20080405
  Serious: Yes (Hospitalization)
  Sender: FDA-Public Use
  Company Number: B0491447A

PATIENT
  Age: 66 Year
  Sex: Male

DRUGS (3)
  1. VALTREX [Suspect]
     Indication: HERPES ZOSTER
     Dosage: 1000MG PER DAY
     Route: 048
     Dates: start: 20071012, end: 20071012
  2. CELESTAMINE TAB [Concomitant]
     Route: 048
  3. CLARITIN [Concomitant]
     Route: 048

REACTIONS (3)
  - INSOMNIA [None]
  - RESTLESSNESS [None]
  - TREMOR [None]
